FAERS Safety Report 7653702-8 (Version None)
Quarter: 2011Q3

REPORT INFORMATION
  Report Type: 
  Country: None (occurrence: None)
  Receive Date: 20110803
  Receipt Date: 20100204
  Transmission Date: 20111222
  Serious: Yes (Other)
  Sender: FDA-Public Use
  Company Number: US-GLAXOSMITHKLINE-A0843378A

PATIENT
  Sex: Female

DRUGS (1)
  1. ADVAIR DISKUS 100/50 [Suspect]
     Indication: PRODUCT USED FOR UNKNOWN INDICATION
     Route: 055

REACTIONS (9)
  - JOINT SWELLING [None]
  - MALAISE [None]
  - PNEUMONIA [None]
  - SKIN ATROPHY [None]
  - ADVERSE DRUG REACTION [None]
  - FUNGAL INFECTION [None]
  - BLOOD GLUCOSE INCREASED [None]
  - CONTUSION [None]
  - DISABILITY [None]
